FAERS Safety Report 9986566 (Version 2)
Quarter: 2014Q4

REPORT INFORMATION
  Report Type: Spontaneous
  Country: EG (occurrence: EG)
  Receive Date: 20140307
  Receipt Date: 20141105
  Transmission Date: 20150529
  Serious: Yes (Hospitalization)
  Sender: FDA-Public Use
  Company Number: EG-ABBVIE-14P-048-1207331-00

PATIENT
  Age: 55 Year
  Sex: Male
  Weight: 75 kg

DRUGS (6)
  1. PREDNISONE. [Concomitant]
     Active Substance: PREDNISONE
     Indication: RHEUMATOID ARTHRITIS
     Route: 048
     Dates: start: 201305, end: 201309
  2. METHOTREXATE [Concomitant]
     Active Substance: METHOTREXATE
     Indication: RHEUMATOID ARTHRITIS
     Dosage: 25/W
     Route: 048
     Dates: start: 201305, end: 201309
  3. HUMIRA [Suspect]
     Active Substance: ADALIMUMAB
     Indication: RHEUMATOID ARTHRITIS
     Route: 058
     Dates: start: 201305, end: 201309
  4. OMEPRAZOLE. [Concomitant]
     Active Substance: OMEPRAZOLE
     Indication: RHEUMATOID ARTHRITIS
     Route: 048
     Dates: start: 201305, end: 201309
  5. FOLIC ACID. [Concomitant]
     Active Substance: FOLIC ACID
     Indication: RHEUMATOID ARTHRITIS
     Route: 048
     Dates: start: 201305, end: 201309
  6. CALCID [Concomitant]
     Indication: RHEUMATOID ARTHRITIS
     Route: 048
     Dates: start: 201305, end: 201309

REACTIONS (4)
  - Papillary muscle rupture [Recovered/Resolved]
  - Oropharyngeal pain [Unknown]
  - Pyrexia [Recovered/Resolved]
  - Chest pain [Recovered/Resolved]
